FAERS Safety Report 5121262-1 (Version None)
Quarter: 2006Q4

REPORT INFORMATION
  Report Type: 
  Country: None (occurrence: None)
  Receive Date: 20061005
  Receipt Date: 20060927
  Transmission Date: 20070319
  Serious: Yes (Hospitalization)
  Sender: FDA-Public Use
  Company Number: JP-ABBOTT-06P-087-0345288-00

PATIENT
  Sex: Male

DRUGS (13)
  1. NORVIR [Suspect]
     Indication: HIV INFECTION
     Route: 048
     Dates: start: 20050811
  2. LAMIVUDINE [Concomitant]
     Indication: HIV INFECTION
     Route: 048
     Dates: start: 20050401, end: 20050810
  3. STAVUDINE [Concomitant]
     Indication: HIV INFECTION
     Route: 048
     Dates: start: 20050401, end: 20050810
  4. NELFINAVIR [Concomitant]
     Indication: HIV INFECTION
     Route: 048
     Dates: start: 20050401, end: 20050810
  5. SAQUINAVIR [Concomitant]
     Indication: HIV INFECTION
     Route: 048
     Dates: start: 20050401, end: 20050810
  6. ATAZANAVIR [Concomitant]
     Indication: HIV INFECTION
     Route: 048
     Dates: start: 20050811
  7. EMTRICITABIN/TENOFOVIR [Concomitant]
     Indication: HIV INFECTION
     Route: 048
     Dates: start: 20050811
  8. LOPERAMIDE HYDROCHLORIDE [Concomitant]
     Indication: DIARRHOEA
     Route: 048
     Dates: start: 20050401
  9. ALENDRONATE SODIUM [Concomitant]
     Indication: OSTEOPOROSIS
     Route: 048
     Dates: start: 20050401
  10. OCTOCOG ALFA [Concomitant]
     Indication: FACTOR VIII DEFICIENCY
     Route: 042
     Dates: start: 20051028, end: 20051103
  11. EPTACOG ALFA [Concomitant]
     Indication: FACTOR VIII DEFICIENCY
     Route: 042
     Dates: start: 20050401
  12. TRANEXAMIC ACID [Concomitant]
     Indication: FACTOR VIII DEFICIENCY
     Route: 065
     Dates: start: 20050401
  13. HUMAN BLOOD-COAGULATION FACTOR EIGHT INHIBITOR BYPASSING ACTIVITY [Concomitant]
     Indication: FACTOR VIII DEFICIENCY
     Route: 042
     Dates: start: 20051001

REACTIONS (1)
  - HEPATIC NEOPLASM MALIGNANT [None]
